FAERS Safety Report 6252944-6 (Version None)
Quarter: 2009Q3

REPORT INFORMATION
  Report Type: 
  Country: None (occurrence: None)
  Receive Date: 20090701
  Receipt Date: 20090623
  Transmission Date: 20100115
  Serious: Yes (Hospitalization)
  Sender: FDA-Public Use
  Company Number: A0794695A

PATIENT
  Sex: Male

DRUGS (2)
  1. ARIXTRA [Suspect]
     Indication: PROPHYLAXIS
     Dosage: 7.5MG UNKNOWN
     Route: 058
  2. UNKNOWN [Concomitant]

REACTIONS (2)
  - ADVERSE EVENT [None]
  - PYREXIA [None]
